FAERS Safety Report 22130062 (Version 2)
Quarter: 2023Q1

REPORT INFORMATION
  Report Type: Spontaneous
  Country: US (occurrence: US)
  Receive Date: 20230323
  Receipt Date: 20230330
  Transmission Date: 20230417
  Serious: Yes (Other)
  Sender: FDA-Public Use
  Company Number: US-VIIV HEALTHCARE LIMITED-US2023AMR041778

PATIENT
  Age: 67 Year
  Sex: Female

DRUGS (8)
  1. RILPIVIRINE [Suspect]
     Active Substance: RILPIVIRINE
     Indication: Product used for unknown indication
     Dosage: UNK
     Route: 065
  2. CABOTEGRAVIR [Suspect]
     Active Substance: CABOTEGRAVIR
     Indication: Product used for unknown indication
     Dosage: UNK
     Route: 065
  3. JULUCA [Suspect]
     Active Substance: DOLUTEGRAVIR SODIUM\RILPIVIRINE HYDROCHLORIDE
     Indication: Product used for unknown indication
     Dosage: 1 DF, QD
     Route: 065
  4. TENOFOVIR DISOPROXIL FUMARATE [Suspect]
     Active Substance: TENOFOVIR DISOPROXIL FUMARATE
     Indication: Antiviral treatment
     Route: 065
  5. DOLUTEGRAVIR [Suspect]
     Active Substance: DOLUTEGRAVIR
     Indication: Antiviral treatment
     Route: 065
  6. COBICISTAT\DARUNAVIR ETHANOLATE [Suspect]
     Active Substance: COBICISTAT\DARUNAVIR ETHANOLATE
     Indication: Antiviral treatment
     Route: 065
  7. EMTRICITABINE [Suspect]
     Active Substance: EMTRICITABINE
     Indication: Antiviral treatment
     Route: 065
  8. ATAZANAVIR\RITONAVIR [Suspect]
     Active Substance: ATAZANAVIR\RITONAVIR
     Indication: Antiviral treatment
     Route: 065

REACTIONS (5)
  - Hepatitis B [Unknown]
  - Hepatitis B reactivation [Unknown]
  - Chronic kidney disease [Unknown]
  - Infection [Unknown]
  - Alanine aminotransferase abnormal [Recovered/Resolved]
